FAERS Safety Report 19906318 (Version 1)
Quarter: 2021Q3

REPORT INFORMATION
  Report Type: Spontaneous
  Country: RU (occurrence: RU)
  Receive Date: 20210930
  Receipt Date: 20210930
  Transmission Date: 20211014
  Serious: Yes (Other)
  Sender: FDA-Public Use
  Company Number: RU-ASTRAZENECA-2021A746928

PATIENT
  Age: 64 Year
  Sex: Female
  Weight: 73 kg

DRUGS (4)
  1. FORXIGA [Suspect]
     Active Substance: DAPAGLIFLOZIN
     Indication: TYPE 2 DIABETES MELLITUS
     Dosage: 10 MG FOR 5 YEARS
     Route: 048
  2. MAGNESIUM SUPPLEMENTS [Concomitant]
     Active Substance: MAGNESIUM
  3. POTASSIUM SUPPLEMENTS [Concomitant]
     Active Substance: POTASSIUM
  4. SUPRASTIN [Concomitant]
     Active Substance: CHLOROPYRAMINE HYDROCHLORIDE
     Route: 030

REACTIONS (6)
  - Product physical issue [Unknown]
  - Insomnia [Recovering/Resolving]
  - Suspected product quality issue [Unknown]
  - Blood pressure increased [Recovered/Resolved]
  - Hypersensitivity [Recovered/Resolved]
  - Urticaria [Recovered/Resolved]
